FAERS Safety Report 5685293-5 (Version None)
Quarter: 2008Q1

REPORT INFORMATION
  Report Type: 
  Country: None (occurrence: None)
  Receive Date: 20080328
  Receipt Date: 20080317
  Transmission Date: 20080703
  Serious: Yes (Hospitalization)
  Sender: FDA-Public Use
  Company Number: DE-PFIZER INC-2008024480

PATIENT
  Sex: Male
  Weight: 51 kg

DRUGS (3)
  1. VFEND [Suspect]
     Indication: ASPERGILLOSIS
     Dosage: DAILY DOSE:800MG
     Route: 048
  2. VFEND [Suspect]
     Dosage: DAILY DOSE:400MG
     Route: 048
  3. ITRACONAZOLE [Concomitant]

REACTIONS (4)
  - ACETABULUM FRACTURE [None]
  - CONFUSIONAL STATE [None]
  - HALLUCINATION [None]
  - JOINT DISLOCATION [None]
